FAERS Safety Report 16182459 (Version 1)
Quarter: 2019Q2

REPORT INFORMATION
  Report Type: Report from Study
  Country: BR (occurrence: BR)
  Receive Date: 20190410
  Receipt Date: 20190410
  Transmission Date: 20190711
  Serious: Yes (Hospitalization, Other)
  Sender: FDA-Public Use
  Company Number: PHHY2019BR079780

PATIENT
  Sex: Female

DRUGS (3)
  1. EXELON PATCH [Suspect]
     Active Substance: RIVASTIGMINE
     Indication: DEMENTIA ALZHEIMER^S TYPE
     Dosage: 9.5 MG, Q24H PATCH 10 (CM2)
     Route: 062
  2. EXELON PATCH [Suspect]
     Active Substance: RIVASTIGMINE
     Dosage: 13.3 MG, Q24H PATCH 15 (CM2)
     Route: 062
  3. EXODUS [Concomitant]
     Indication: ANTIDEPRESSANT THERAPY
     Dosage: UNK
     Route: 065

REACTIONS (11)
  - Dementia Alzheimer^s type [Unknown]
  - Depression [Unknown]
  - Memory impairment [Unknown]
  - Urinary tract infection [Unknown]
  - Anaemia [Unknown]
  - Depressed mood [Unknown]
  - Feeling abnormal [Unknown]
  - Feeling cold [Unknown]
  - Eating disorder [Unknown]
  - Pneumonia [Unknown]
  - Pyrexia [Unknown]
